FAERS Safety Report 18016313 (Version 3)
Quarter: 2021Q1

REPORT INFORMATION
  Report Type: Spontaneous
  Country: US (occurrence: US)
  Receive Date: 20200714
  Receipt Date: 20210119
  Transmission Date: 20210419
  Serious: Yes (Death, Other)
  Sender: FDA-Public Use
  Company Number: US-TEVA-2020-US-1800064

PATIENT
  Age: 79 Year
  Sex: Male
  Weight: 91.71 kg

DRUGS (3)
  1. VALSARTAN SANDOZ [Suspect]
     Active Substance: VALSARTAN
     Indication: HYPERTENSION
     Dosage: 80MG
     Dates: start: 20160622, end: 20180320
  2. VALSARTAN SOLCO HEALTHCARE [Suspect]
     Active Substance: VALSARTAN
     Indication: HYPERTENSION
     Dosage: 160 MG
     Dates: start: 20160204, end: 20160401
  3. VALSARTAN/HYDROCHOLROTHIAZIDE LUPIN PHARMACEUTICALS [Suspect]
     Active Substance: HYDROCHLOROTHIAZIDE\VALSARTAN
     Indication: HYPERTENSION
     Dosage: 160/12.5MG
     Dates: start: 20140228, end: 20160530

REACTIONS (1)
  - Colorectal cancer [Fatal]

NARRATIVE: CASE EVENT DATE: 201803
